FAERS Safety Report 7623394-2 (Version None)
Quarter: 2011Q3

REPORT INFORMATION
  Report Type: 
  Country: None (occurrence: None)
  Receive Date: 20110701
  Receipt Date: 20110126
  Transmission Date: 20111222
  Serious: Yes (Hospitalization)
  Sender: FDA-Public Use
  Company Number: 7038855

PATIENT
  Age: 23 Year
  Sex: Male

DRUGS (2)
  1. REBIF [Suspect]
     Indication: MULTIPLE SCLEROSIS
     Dosage: 44 MCG, 3 IN 1 WK, SUBCUTANEOUS
     Route: 058
     Dates: start: 20100602
  2. NAPROXEN [Concomitant]

REACTIONS (6)
  - DECREASED APPETITE [None]
  - MULTIPLE SCLEROSIS RELAPSE [None]
  - ANGER [None]
  - VISUAL IMPAIRMENT [None]
  - RASH [None]
  - IRRITABILITY [None]
